FAERS Safety Report 6538469-9 (Version None)
Quarter: 2010Q1

REPORT INFORMATION
  Report Type: 
  Country: None (occurrence: None)
  Receive Date: 20100114
  Receipt Date: 20100104
  Transmission Date: 20100710
  Serious: Yes (Life-Threatening, Other)
  Sender: FDA-Public Use
  Company Number: US-BAXTER-2010BH000126

PATIENT
  Sex: Female

DRUGS (4)
  1. HEPARIN SODIUM INJECTION [Suspect]
     Indication: DRUG USE FOR UNKNOWN INDICATION
     Route: 065
     Dates: start: 20070301, end: 20070301
  2. ABILIFY [Suspect]
     Indication: DEPRESSION
     Route: 048
  3. PHENPHEDRINE [Concomitant]
     Indication: WEIGHT INCREASED
     Route: 048
     Dates: start: 20090101
  4. MEDICATION [Concomitant]
     Indication: MEMORY IMPAIRMENT
     Route: 065

REACTIONS (23)
  - ADVERSE EVENT [None]
  - BLOOD PRESSURE DECREASED [None]
  - BRADYPHRENIA [None]
  - DEPRESSION [None]
  - DIARRHOEA [None]
  - DYSPNOEA [None]
  - HYPOTONIA [None]
  - LUNG DISORDER [None]
  - MEMORY IMPAIRMENT [None]
  - MOUTH HAEMORRHAGE [None]
  - NERVOUSNESS [None]
  - OEDEMA PERIPHERAL [None]
  - ORGAN FAILURE [None]
  - PROCTALGIA [None]
  - PULMONARY HAEMORRHAGE [None]
  - RASH MACULAR [None]
  - RECTAL HAEMORRHAGE [None]
  - RENAL FAILURE [None]
  - RESPIRATORY FAILURE [None]
  - SKIN DISCOLOURATION [None]
  - TOOTH INFECTION [None]
  - TOOTH LOSS [None]
  - WEIGHT INCREASED [None]
